FAERS Safety Report 7874018-0 (Version None)
Quarter: 2011Q4

REPORT INFORMATION
  Report Type: 
  Country: None (occurrence: None)
  Receive Date: 20111030
  Receipt Date: 20110513
  Transmission Date: 20120403
  Serious: No
  Sender: FDA-Public Use
  Company Number: US-AMGEN-USASP2011024901

PATIENT
  Age: 50 Year
  Sex: Female
  Weight: 89.796 kg

DRUGS (8)
  1. METHOTREXATE [Concomitant]
     Dosage: 2.5 MG, UNK
  2. KLOR-CON [Concomitant]
  3. PLAQUENIL [Concomitant]
     Dosage: 200 MG, UNK
  4. FOLIC ACID [Concomitant]
     Dosage: 1 MG, UNK
  5. ENBREL [Suspect]
     Indication: PRODUCT USED FOR UNKNOWN INDICATION
     Dosage: 50 MG, QWK
     Route: 058
  6. VITAMIN D [Concomitant]
     Dosage: 400 IU, UNK
  7. DYAZIDE [Concomitant]
  8. NEXIUM [Concomitant]
     Dosage: 20 MG, UNK

REACTIONS (1)
  - WOUND [None]
